FAERS Safety Report 7609948-8 (Version None)
Quarter: 2011Q3

REPORT INFORMATION
  Report Type: 
  Country: None (occurrence: None)
  Receive Date: 20110714
  Receipt Date: 20110114
  Transmission Date: 20111222
  Serious: No
  Sender: FDA-Public Use
  Company Number: US-TYCO HEALTHCARE/MALLINCKRODT-T201100106

PATIENT
  Sex: Male
  Weight: 90.249 kg

DRUGS (8)
  1. OXYCODONE HCL [Concomitant]
     Indication: PAIN
     Dosage: 40 MG BID
  2. FENTANYL [Concomitant]
     Indication: PAIN
  3. ASPIRIN [Concomitant]
     Indication: PROPHYLAXIS
  4. SYNTHROID [Concomitant]
     Indication: HYPOTHYROIDISM
  5. ZANAFLEX [Concomitant]
     Indication: PAIN
  6. FLURBIPROFEN [Concomitant]
     Indication: PAIN
  7. OXYCODONE HCL [Suspect]
     Indication: BACK PAIN
     Dosage: 2 TABS; 5 TIMES A DAY
     Route: 048
     Dates: start: 20090101
  8. CARVEDILOL [Concomitant]
     Indication: BLOOD PRESSURE INCREASED

REACTIONS (2)
  - BLOOD PRESSURE INCREASED [None]
  - HYPERHIDROSIS [None]
